FAERS Safety Report 16066488 (Version 1)
Quarter: 2019Q1

REPORT INFORMATION
  Report Type: Spontaneous
  Country: US (occurrence: US)
  Receive Date: 20190212
  Receipt Date: 20190212
  Transmission Date: 20190418
  Serious: Yes (Hospitalization)
  Sender: FDA-Public Use
  Company Number: None

PATIENT
  Age: 29 Year
  Sex: Male
  Weight: 101.2 kg

DRUGS (1)
  1. NELFINAVIR [Suspect]
     Active Substance: NELFINAVIR
     Dates: end: 20190128

REACTIONS (5)
  - Diarrhoea [None]
  - Cholecystitis [None]
  - Abdominal pain [None]
  - Hypokalaemia [None]
  - Hyperglycaemia [None]

NARRATIVE: CASE EVENT DATE: 20190131
